FAERS Safety Report 20835585 (Version 1)
Quarter: 2022Q2

REPORT INFORMATION
  Report Type: 
  Country: None (occurrence: None)
  Receive Date: 20220516
  Receipt Date: 20220516
  Transmission Date: 20220720
  Serious: No
  Sender: FDA-Public Use
  Company Number: BE-ROCHE-3022489

PATIENT
  Age: 41 Year
  Weight: 81 kg

DRUGS (7)
  1. ATEZOLIZUMAB [Suspect]
     Active Substance: ATEZOLIZUMAB
     Dosage: START DATE OF MOST RECENT DOSE OF STUDY DRUG PRIOR TO AE 25-JAN-2022?START DATE OF MOST RECENT DOSE
     Dates: start: 20220125
  2. LENVATINIB [Suspect]
     Active Substance: LENVATINIB
     Dosage: START DATE OF MOST RECENT DOSE OF STUDY DRUG PRIOR TO AE 30-JAN-2022?START DATE OF MOST RECENT DOSE
     Dates: start: 20220125
  3. TENOFOVIR [Concomitant]
     Active Substance: TENOFOVIR
  4. TRAMADOL [Concomitant]
     Active Substance: TRAMADOL
  5. DAFALGAN [Concomitant]
     Active Substance: ACETAMINOPHEN
     Dates: start: 20220205
  6. TRAMADOL HYDROCHLORIDE [Concomitant]
     Active Substance: TRAMADOL HYDROCHLORIDE
     Dates: start: 20220205
  7. PANTOPRAZOLE SODIUM [Concomitant]
     Active Substance: PANTOPRAZOLE SODIUM
     Dates: start: 20220311

REACTIONS (2)
  - Duodenal ulcer [None]
  - Abdominal pain [None]

NARRATIVE: CASE EVENT DATE: 20220131
